FAERS Safety Report 4350371-X (Version None)
Quarter: 2004Q2

REPORT INFORMATION
  Report Type: 
  Country: None (occurrence: None)
  Receive Date: 20040430
  Receipt Date: 20030428
  Transmission Date: 20050107
  Serious: No
  Sender: FDA-Public Use
  Company Number: US-BRISTOL-MYERS SQUIBB COMPANY-12256921

PATIENT
  Sex: Female

DRUGS (1)
  1. LAC-HYDRIN [Suspect]
     Indication: ECZEMA
     Dosage: DURATION OF THERAPY: 4-5 DAYS
     Route: 061
     Dates: start: 20010101, end: 20010101

REACTIONS (1)
  - LOCALISED EXFOLIATION [None]
